FAERS Safety Report 13180784 (Version 1)
Quarter: 2017Q1

REPORT INFORMATION
  Report Type: Spontaneous
  Country: US (occurrence: US)
  Receive Date: 20170202
  Receipt Date: 20170202
  Transmission Date: 20170428
  Serious: No
  Sender: FDA-Public Use
  Company Number: US-SMITH AND NEPHEW, INC-2016SMT00074

PATIENT
  Sex: Female
  Weight: 90.7 kg

DRUGS (2)
  1. UNSPECIFIED CONCOMITANT MEDICATIONS [Concomitant]
  2. REGRANEX [Suspect]
     Active Substance: BECAPLERMIN
     Indication: DIABETIC FOOT
     Dosage: UNK, 1X/DAY
     Dates: start: 201511

REACTIONS (1)
  - Wound complication [Unknown]
